FAERS Safety Report 6272345-4 (Version None)
Quarter: 2009Q3

REPORT INFORMATION
  Report Type: 
  Country: None (occurrence: None)
  Receive Date: 20090717
  Receipt Date: 20090714
  Transmission Date: 20100115
  Serious: Yes (Death)
  Sender: FDA-Public Use
  Company Number: JP-SANOFI-SYNTHELABO-A01200907453

PATIENT
  Age: 62 Year
  Sex: Male

DRUGS (1)
  1. ELPLAT [Suspect]
     Dosage: UNK
     Route: 041

REACTIONS (3)
  - DISSEMINATED INTRAVASCULAR COAGULATION [None]
  - DYSPNOEA [None]
  - RENAL FAILURE [None]
